FAERS Safety Report 8483248-9 (Version None)
Quarter: 2012Q3

REPORT INFORMATION
  Report Type: 
  Country: None (occurrence: None)
  Receive Date: 20120702
  Receipt Date: 20120621
  Transmission Date: 20120928
  Serious: Yes (Other)
  Sender: FDA-Public Use
  Company Number: FR-VERTEX PHARMACEUTICALS INC.-000000000000000255

PATIENT
  Sex: Male

DRUGS (5)
  1. COPEGUS [Concomitant]
     Indication: HEPATITIS C
     Dosage: DOSAGE FORM: TABLET
     Route: 048
     Dates: start: 20111028
  2. INCIVO (TELAPREVIR) [Suspect]
     Indication: HEPATITIS C
     Dosage: DOSAGE FORM: TABLET
     Route: 048
     Dates: start: 20111028, end: 20120120
  3. PEGASYS [Concomitant]
     Indication: HEPATITIS C
     Dosage: DOSAGE FORM: SOLUTION FOR INJECTION
     Route: 058
     Dates: start: 20111028
  4. TRUVADA [Concomitant]
     Dates: start: 20060101
  5. REYATAZ [Concomitant]
     Dates: start: 20060101

REACTIONS (4)
  - ASTHENIA [None]
  - OFF LABEL USE [None]
  - DYSAESTHESIA [None]
  - POLLAKIURIA [None]
